FAERS Safety Report 17271668 (Version 2)
Quarter: 2020Q1

REPORT INFORMATION
  Report Type: Report from Study
  Country: BE (occurrence: BE)
  Receive Date: 20200115
  Receipt Date: 20200122
  Transmission Date: 20200409
  Serious: Yes (Death)
  Sender: FDA-Public Use
  Company Number: BE-BEH-2020111701

PATIENT
  Age: 79 Year
  Sex: Male
  Weight: 58 kg

DRUGS (1)
  1. HIZENTRA [Suspect]
     Active Substance: HUMAN IMMUNOGLOBULIN G
     Indication: PRODUCT USED FOR UNKNOWN INDICATION
     Dosage: 4 GRAM (20 ML), QW
     Route: 058
     Dates: start: 20191217, end: 20191221

REACTIONS (1)
  - Death [Fatal]

NARRATIVE: CASE EVENT DATE: 20191221
